FAERS Safety Report 14211690 (Version 8)
Quarter: 2018Q2

REPORT INFORMATION
  Report Type: Report from Study
  Country: US (occurrence: US)
  Receive Date: 20171121
  Receipt Date: 20180525
  Transmission Date: 20180711
  Serious: Yes (Hospitalization)
  Sender: FDA-Public Use
  Company Number: US-ACTELION-A-US2017-154260

PATIENT
  Age: 55 Year
  Sex: Female

DRUGS (17)
  1. NORVASC [Concomitant]
     Active Substance: AMLODIPINE BESYLATE
  2. NEUROTIN [Concomitant]
     Active Substance: GABAPENTIN
  3. VASOTEC [Concomitant]
     Active Substance: ENALAPRIL MALEATE
  4. SINGULAIR [Concomitant]
     Active Substance: MONTELUKAST SODIUM
  5. ADEMPAS [Concomitant]
     Active Substance: RIOCIGUAT
  6. DOLOGEN [Concomitant]
     Active Substance: ACETAMINOPHEN\DEXBROMPHENIRAMINE MALEATE
  7. ZOLOFT [Concomitant]
     Active Substance: SERTRALINE HYDROCHLORIDE
  8. WARFARIN [Concomitant]
     Active Substance: WARFARIN
  9. VENTOLIN [Concomitant]
     Active Substance: ALBUTEROL SULFATE
  10. SPIRIVA [Concomitant]
     Active Substance: TIOTROPIUM BROMIDE MONOHYDRATE
  11. METOPROLOL. [Concomitant]
     Active Substance: METOPROLOL
  12. SYNTHROID [Concomitant]
     Active Substance: LEVOTHYROXINE SODIUM
  13. OPSUMIT [Suspect]
     Active Substance: MACITENTAN
     Indication: PULMONARY ARTERIAL HYPERTENSION
     Dosage: 10 MG, QD
     Route: 048
     Dates: start: 20170423
  14. ADVAIR HFA [Concomitant]
     Active Substance: FLUTICASONE PROPIONATE\SALMETEROL XINAFOATE
  15. XARELTO [Concomitant]
     Active Substance: RIVAROXABAN
  16. BIOTIN [Concomitant]
     Active Substance: BIOTIN
  17. LASIX [Concomitant]
     Active Substance: FUROSEMIDE

REACTIONS (20)
  - Oxygen saturation decreased [Recovering/Resolving]
  - Pain [Recovering/Resolving]
  - Generalised oedema [Not Recovered/Not Resolved]
  - Bronchitis [Recovering/Resolving]
  - Respiratory distress [Recovering/Resolving]
  - Vomiting [Recovering/Resolving]
  - Asthma [Recovered/Resolved]
  - Fatigue [Recovering/Resolving]
  - Pyrexia [Recovering/Resolving]
  - Headache [Recovering/Resolving]
  - Pneumonia [Unknown]
  - Face oedema [Unknown]
  - International normalised ratio decreased [Unknown]
  - Dyspnoea [Recovering/Resolving]
  - Pulmonary oedema [Recovering/Resolving]
  - Oedema peripheral [Not Recovered/Not Resolved]
  - Nausea [Recovering/Resolving]
  - Productive cough [Not Recovered/Not Resolved]
  - Fluid retention [Not Recovered/Not Resolved]
  - Urinary tract infection [Not Recovered/Not Resolved]

NARRATIVE: CASE EVENT DATE: 20170510
